FAERS Safety Report 7236320-5 (Version None)
Quarter: 2011Q1

REPORT INFORMATION
  Report Type: 
  Country: None (occurrence: None)
  Receive Date: 20110120
  Receipt Date: 20110112
  Transmission Date: 20110831
  Serious: Yes (Hospitalization, Disabling)
  Sender: FDA-Public Use
  Company Number: JP-ASTRAZENECA-2011SE01071

PATIENT
  Age: 66 Year
  Sex: Female
  Weight: 45 kg

DRUGS (6)
  1. AMLODIPINE [Concomitant]
     Indication: HYPERTENSION
     Route: 048
  2. CRESTOR [Suspect]
     Indication: HYPERCHOLESTEROLAEMIA
     Route: 048
     Dates: start: 20101213, end: 20110103
  3. BLOPRESS [Concomitant]
     Indication: HYPERTENSION
     Route: 048
  4. ASPIRIN [Concomitant]
     Dosage: DOSE UNKNOWN
     Route: 048
  5. ARTIST [Suspect]
     Indication: CARDIAC FAILURE CHRONIC
     Route: 048
     Dates: start: 20101213, end: 20110104
  6. PLAVIX [Suspect]
     Indication: PERCUTANEOUS CORONARY INTERVENTION
     Route: 048
     Dates: start: 20101213, end: 20110111

REACTIONS (2)
  - HEPATIC FUNCTION ABNORMAL [None]
  - JAUNDICE [None]
